FAERS Safety Report 23948110 (Version 1)
Quarter: 2024Q2

REPORT INFORMATION
  Report Type: Other
  Country: GT (occurrence: GT)
  Receive Date: 20240607
  Receipt Date: 20240607
  Transmission Date: 20240716
  Serious: Yes (Other)
  Sender: FDA-Public Use
  Company Number: GT-TOLMAR, INC.-24GT049510

PATIENT
  Age: 54 Year
  Sex: Male

DRUGS (4)
  1. ELIGARD [Suspect]
     Active Substance: LEUPROLIDE ACETATE
     Indication: Prostate cancer
     Dosage: 45 MILLIGRAM, Q 6 MONTH
     Route: 058
     Dates: start: 20240117
  2. ELIGARD [Suspect]
     Active Substance: LEUPROLIDE ACETATE
     Indication: Prostate cancer
     Dosage: UNK
  3. UNSPECIFIED INGREDIENT [Suspect]
     Active Substance: UNSPECIFIED INGREDIENT
     Indication: Metastases to bone
     Dosage: UNK
     Dates: start: 202403
  4. UNSPECIFIED INGREDIENT [Suspect]
     Active Substance: UNSPECIFIED INGREDIENT
     Indication: Metastases to lymph nodes
     Dosage: UNK
     Dates: start: 20240516

REACTIONS (8)
  - Gait inability [Recovered/Resolved]
  - Deep vein thrombosis [Recovered/Resolved]
  - Metastases to bone [Unknown]
  - Metastases to lymph nodes [Unknown]
  - Metastases to spine [Unknown]
  - Superficial vein thrombosis [Recovered/Resolved]
  - Lymphadenopathy [Recovered/Resolved]
  - Somnolence [Recovered/Resolved]

NARRATIVE: CASE EVENT DATE: 20240516
